FAERS Safety Report 25796421 (Version 1)
Quarter: 2025Q3

REPORT INFORMATION
  Report Type: Spontaneous
  Country: EU (occurrence: EU)
  Receive Date: 20250912
  Receipt Date: 20250912
  Transmission Date: 20251020
  Serious: Yes (Other)
  Sender: RANBAXY
  Company Number: EU-AFSSAPS-PC2025000422

PATIENT
  Age: 74 Year
  Sex: Male
  Weight: 84 kg

DRUGS (2)
  1. OMEPRAZOLE [Suspect]
     Active Substance: OMEPRAZOLE
     Indication: Gastrooesophageal reflux disease
     Dosage: 20 MILLIGRAM, DAILY
     Route: 048
     Dates: start: 20250326, end: 20250513
  2. SINTROM [Concomitant]
     Active Substance: ACENOCOUMAROL
     Indication: Atrial fibrillation
     Route: 065

REACTIONS (1)
  - International normalised ratio increased [Recovered/Resolved]

NARRATIVE: CASE EVENT DATE: 20250514
